FAERS Safety Report 9988741 (Version 1)
Quarter: 2013Q4

REPORT INFORMATION
  Report Type: Spontaneous
  Country: US (occurrence: None)
  Receive Date: 20131015
  Receipt Date: 20131015
  Transmission Date: 20140711
  Serious: Yes (Hospitalization, Other)
  Sender: FDA-Public Use
  Company Number: 2013-000676

PATIENT
  Age: 64 Year
  Sex: Female

DRUGS (12)
  1. ACTONEL [Suspect]
     Route: 048
     Dates: start: 20040115, end: 201108
  2. FOSAMAX (ALENDRONATE SODIUM) [Suspect]
     Route: 048
     Dates: start: 20031118, end: 200401
  3. BENICAR (OLMESARTAN MEDOXOMIL) [Concomitant]
  4. LIPITOR (ATORVASTATIN CALCIUM) [Concomitant]
  5. MELOXICAM (MELOXICAM) [Concomitant]
  6. PREVACID (LANSOPRAZOLE) [Concomitant]
  7. OMEPRAZOLE (OMEPRAZOLE) [Concomitant]
  8. AMBIEN (ZOLPIDEM TARTRATE) [Concomitant]
  9. ALPRAZOLAM (ALPRAZOLAM) [Concomitant]
  10. FEXOFENADINE (FEXOFENADINE) [Concomitant]
  11. FLUTICASONE (FLUTICASONE) [Concomitant]
  12. VALTREX (VALCICLOVIR HYDROCHLORIDE) [Concomitant]

REACTIONS (6)
  - Femur fracture [None]
  - Comminuted fracture [None]
  - Fracture displacement [None]
  - Injury [None]
  - Stress fracture [None]
  - Pain in extremity [None]
